FAERS Safety Report 8220432-3 (Version None)
Quarter: 2012Q1

REPORT INFORMATION
  Report Type: 
  Country: None (occurrence: None)
  Receive Date: 20120313
  Receipt Date: 20120229
  Transmission Date: 20120608
  Serious: Yes (Hospitalization, Congenital Anomaly)
  Sender: FDA-Public Use
  Company Number: A0969008A

PATIENT
  Sex: Female

DRUGS (1)
  1. VALACYCLOVIR HYDROCHLORIDE [Suspect]
     Indication: ORAL HERPES
     Dosage: 500 MG / TWICE PER DAY / TRANSPLACEN
     Route: 064

REACTIONS (4)
  - PNEUMONITIS [None]
  - MATERNAL DRUGS AFFECTING FOETUS [None]
  - CONGENITAL HERPES SIMPLEX INFECTION [None]
  - HEPATITIS [None]
